FAERS Safety Report 15932479 (Version 1)
Quarter: 2019Q1

REPORT INFORMATION
  Report Type: Spontaneous
  Country: DE (occurrence: DE)
  Receive Date: 20190207
  Receipt Date: 20190207
  Transmission Date: 20190417
  Serious: Yes (Death, Life-Threatening, Hospitalization, Other)
  Sender: FDA-Public Use
  Company Number: DE-SA-200110810DE

PATIENT
  Age: 82 Year
  Sex: Female

DRUGS (6)
  1. PANTOPRAZOLE [Concomitant]
     Active Substance: PANTOPRAZOLE
     Indication: PROPHYLAXIS
     Dosage: 20 MG, QD
     Route: 048
     Dates: start: 20001009, end: 20001023
  2. ZYLORIC [Concomitant]
     Active Substance: ALLOPURINOL
     Indication: HYPERURICAEMIA
     Dosage: UNK UNK, QD
     Route: 048
     Dates: end: 20001018
  3. CORANGIN [Concomitant]
     Active Substance: ISOSORBIDE MONONITRATE
     Indication: ARTERIOSCLEROSIS CORONARY ARTERY
     Dosage: 20 MG, QD
     Route: 048
  4. CLAFORAN [Suspect]
     Active Substance: CEFOTAXIME SODIUM
     Indication: PNEUMONIA
     Dosage: UNK UNK, QD
     Route: 042
     Dates: start: 20001012, end: 20001023
  5. MONO-EMBOLEX NM [Suspect]
     Active Substance: CERTOPARIN SODIUM
     Indication: THROMBOSIS PROPHYLAXIS
     Dosage: 1 DF, QD
     Route: 058
     Dates: start: 20001009, end: 20001012
  6. CLAFORAN [Concomitant]
     Active Substance: CEFOTAXIME SODIUM
     Dosage: UNK

REACTIONS (4)
  - Heparin-induced thrombocytopenia [Recovered/Resolved]
  - Agranulocytosis [Fatal]
  - Septic shock [Fatal]
  - Drug specific antibody [Unknown]

NARRATIVE: CASE EVENT DATE: 200010
